FAERS Safety Report 4376535-7 (Version None)
Quarter: 2004Q2

REPORT INFORMATION
  Report Type: 
  Country: None (occurrence: None)
  Receive Date: 20040601
  Receipt Date: 20040309
  Transmission Date: 20050107
  Serious: No
  Sender: FDA-Public Use
  Company Number: 701765

PATIENT
  Age: 24 Year
  Sex: Male
  Weight: 86.1834 kg

DRUGS (1)
  1. AMEVIVE [Suspect]
     Indication: PSORIASIS
     Dosage: 15 MG QW IM
     Dates: start: 20040101

REACTIONS (2)
  - FATIGUE [None]
  - SNEEZING [None]
